FAERS Safety Report 12926529 (Version 1)
Quarter: 2016Q4

REPORT INFORMATION
  Report Type: Spontaneous
  Country: GB (occurrence: GB)
  Receive Date: 20161109
  Receipt Date: 20161109
  Transmission Date: 20170207
  Serious: Yes (Hospitalization)
  Sender: FDA-Public Use
  Company Number: GB-TEVA-709725ACC

PATIENT
  Age: 85 Year
  Sex: Male

DRUGS (12)
  1. MEZOLAR MATRIX [Suspect]
     Active Substance: FENTANYL
     Dosage: 3X25UG PATCHES
     Route: 062
  2. DIGOXIN. [Concomitant]
     Active Substance: DIGOXIN
  3. OMEPRAZOLE. [Concomitant]
     Active Substance: OMEPRAZOLE
  4. CLOPIDOGREL [Concomitant]
     Active Substance: CLOPIDOGREL BISULFATE
  5. METOPROLOL. [Concomitant]
     Active Substance: METOPROLOL
  6. METFORMIN HYDROCHLORIDE. [Suspect]
     Active Substance: METFORMIN HYDROCHLORIDE
     Dosage: 2000 MILLIGRAM DAILY;
     Route: 048
  7. MEZOLAR MATRIX [Suspect]
     Active Substance: FENTANYL
     Dosage: REGULAR DOSE
     Route: 062
  8. CITALOPRAM [Concomitant]
     Active Substance: CITALOPRAM HYDROBROMIDE
  9. PREDNISOLONE. [Concomitant]
     Active Substance: PREDNISOLONE
  10. TRAMADOL. [Concomitant]
     Active Substance: TRAMADOL
  11. CELECOXIB. [Suspect]
     Active Substance: CELECOXIB
     Route: 048
  12. TAMSULOSIN [Concomitant]
     Active Substance: TAMSULOSIN

REACTIONS (2)
  - Acute kidney injury [Recovering/Resolving]
  - Accidental overdose [Recovering/Resolving]
